FAERS Safety Report 9419889 (Version 1)
Quarter: 2013Q3

REPORT INFORMATION
  Report Type: Spontaneous
  Country: JP (occurrence: JP)
  Receive Date: 20130725
  Receipt Date: 20130725
  Transmission Date: 20140515
  Serious: Yes (Other)
  Sender: FDA-Public Use
  Company Number: JP-COVIDIEN/TYCO HEALTHCARE/MALLINCKRODT-T201303792

PATIENT
  Age: 60 Year
  Sex: Female
  Weight: 40 kg

DRUGS (17)
  1. METHADONE [Suspect]
     Indication: CANCER PAIN
     Dosage: 45 MG, QD, 15MG ONE TIME DOSE
     Route: 048
     Dates: start: 20130527, end: 20130603
  2. METHADONE [Suspect]
     Dosage: 50 MG, QD, 25MG ONE TIME DOSE
     Route: 048
     Dates: start: 20130604, end: 20130610
  3. METHADONE [Suspect]
     Dosage: 55 MG, QD
     Route: 048
     Dates: start: 20130611
  4. MORPHINE HYDROCHLORIDE [Concomitant]
     Indication: CANCER PAIN
     Dosage: 10 MG, PRN
     Route: 042
     Dates: start: 20130527
  5. MORPHINE HYDROCHLORIDE [Concomitant]
     Dosage: 60 MG, UNK
     Dates: start: 20130527, end: 20130529
  6. KETALAR [Concomitant]
     Dosage: 300 MG, UNK
     Route: 042
     Dates: start: 20130325, end: 20130527
  7. KETALAR [Concomitant]
     Dosage: 100 MG, UNK
     Route: 042
     Dates: start: 20130527, end: 20130529
  8. TAKEPRON [Concomitant]
     Dosage: 15 MG, UNK
     Route: 048
     Dates: start: 20121005
  9. RINDERON                           /00008501/ [Concomitant]
     Dosage: 0.5 MG, UNK
     Route: 048
     Dates: start: 20130305
  10. CALONAL [Concomitant]
     Dosage: 2400 MG, UNK
     Route: 048
     Dates: start: 20121019
  11. AMITIZA [Concomitant]
     Dosage: 48 ?G, UNK
     Route: 048
     Dates: start: 20130208
  12. PURSENNID                          /00142207/ [Concomitant]
     Dosage: 48 MG, UNK
     Route: 048
  13. ROPION [Concomitant]
     Dosage: 150 MG, UNK
     Route: 042
     Dates: start: 20130403
  14. ROHYPNOL [Concomitant]
     Dosage: 2 MG, UNK
     Route: 042
     Dates: start: 20130403
  15. CONTOMIN [Concomitant]
     Dosage: 12.5 MG, UNK
     Route: 042
     Dates: start: 20130527
  16. YOKUKAN-SAN [Concomitant]
     Dosage: 7.5 G, UNK
     Route: 048
     Dates: start: 20130521
  17. ZOMETA [Concomitant]
     Dosage: 4 MG, UNK
     Route: 042
     Dates: start: 20130611

REACTIONS (5)
  - Affect lability [Recovered/Resolved]
  - Lacrimation increased [Recovered/Resolved]
  - Chills [Recovered/Resolved]
  - Yawning [Recovered/Resolved]
  - Nausea [Recovering/Resolving]
